FAERS Safety Report 9748330 (Version 2)
Quarter: 2014Q1

REPORT INFORMATION
  Report Type: Spontaneous
  Country: DE (occurrence: DE)
  Receive Date: 20131212
  Receipt Date: 20140212
  Transmission Date: 20141002
  Serious: Yes (Other)
  Sender: FDA-Public Use
  Company Number: PHHY2013DE144879

PATIENT
  Sex: Male

DRUGS (5)
  1. SANDIMMUN [Suspect]
     Indication: MYELODYSPLASTIC SYNDROME
     Dates: start: 2007, end: 2007
  2. ANTITHYMOCYTE IMMUNOGLOBULIN (HORSE) [Concomitant]
     Indication: MYELODYSPLASTIC SYNDROME
     Dates: start: 2007, end: 2007
  3. PANTOPRAZOLE [Concomitant]
     Dates: start: 2007, end: 2007
  4. COTRIM [Concomitant]
     Dates: start: 2007, end: 2007
  5. VITAMIN B12 [Concomitant]
     Dates: start: 2007, end: 2007

REACTIONS (10)
  - Cholelithiasis [Recovered/Resolved]
  - Demyelination [Not Recovered/Not Resolved]
  - Hyperaesthesia [Not Recovered/Not Resolved]
  - Thermohypoaesthesia [Not Recovered/Not Resolved]
  - Paroxysmal nocturnal haemoglobinuria [Unknown]
  - Polyneuropathy [Not Recovered/Not Resolved]
  - Vitamin B6 decreased [Unknown]
  - Blood immunoglobulin M increased [Unknown]
  - Intention tremor [Recovered/Resolved]
  - Resting tremor [Recovered/Resolved]
